FAERS Safety Report 15799710 (Version 2)
Quarter: 2019Q2

REPORT INFORMATION
  Report Type: Spontaneous
  Country: US (occurrence: US)
  Receive Date: 20190108
  Receipt Date: 20190403
  Transmission Date: 20190711
  Serious: No
  Sender: FDA-Public Use
  Company Number: US-SHIRE-US201900523

PATIENT
  Sex: Female

DRUGS (1)
  1. GATTEX [Suspect]
     Active Substance: TEDUGLUTIDE\WATER
     Indication: PARENTERAL NUTRITION
     Dosage: 0.400 UNKNOWN UNIT, 1X/DAY:QD
     Route: 065
     Dates: start: 201711, end: 2018

REACTIONS (1)
  - Drug ineffective [Not Recovered/Not Resolved]
